FAERS Safety Report 7039707-9 (Version None)
Quarter: 2010Q3

REPORT INFORMATION
  Report Type: 
  Country: None (occurrence: None)
  Receive Date: 20100929
  Receipt Date: 20100722
  Transmission Date: 20110219
  Serious: No
  Sender: FDA-Public Use
  Company Number: US-WYE-H16579710

PATIENT
  Age: 42 Year
  Sex: Female
  Weight: 77.18 kg

DRUGS (4)
  1. PRISTIQ [Suspect]
     Indication: MAJOR DEPRESSION
     Dosage: 50 MG 1X PER 1 DAY, ORAL
     Route: 048
     Dates: start: 20100701
  2. NEURONTUN (GABAPENTIN) [Concomitant]
  3. VICODIN [Concomitant]
  4. SOMA [Concomitant]

REACTIONS (1)
  - OEDEMA PERIPHERAL [None]
